FAERS Safety Report 10598795 (Version 2)
Quarter: 2014Q4

REPORT INFORMATION
  Report Type: Spontaneous
  Country: GR (occurrence: GR)
  Receive Date: 20141121
  Receipt Date: 20141208
  Transmission Date: 20150529
  Serious: Yes (Other)
  Sender: FDA-Public Use
  Company Number: GR-BIAL, PORTELA + CA S.A.-BIAL-02703

PATIENT
  Age: 36 Year
  Sex: Female

DRUGS (2)
  1. TRILEPTAL [Concomitant]
     Active Substance: OXCARBAZEPINE
     Indication: EPILEPSY
     Dates: start: 20141108
  2. ZEBINIX (ESLICARBAZEPINE ACETATE) [Suspect]
     Active Substance: ESLICARBAZEPINE ACETATE
     Indication: EPILEPSY
     Dosage: 200 MG, 1X / DAY
     Route: 048
     Dates: start: 2013, end: 20141107

REACTIONS (2)
  - Bradycardia [Recovered/Resolved]
  - Off label use [None]

NARRATIVE: CASE EVENT DATE: 2014
